FAERS Safety Report 7753898-3 (Version None)
Quarter: 2011Q3

REPORT INFORMATION
  Report Type: 
  Country: None (occurrence: None)
  Receive Date: 20110915
  Receipt Date: 20110830
  Transmission Date: 20111222
  Serious: Yes (Hospitalization)
  Sender: FDA-Public Use
  Company Number: US-BAYER-2010-009299

PATIENT
  Age: 20 Year
  Sex: Female
  Weight: 83.9 kg

DRUGS (10)
  1. DROSPIRENONE AND ETHINYL ESTRADIOL [Suspect]
     Dosage: UNK
     Dates: start: 20080601
  2. BENZOATE [Concomitant]
     Dosage: 200 MG, UNK
     Route: 048
     Dates: start: 20090407
  3. AZITHROMYCIN [Concomitant]
     Dosage: 250 MG, UNK
     Route: 048
     Dates: start: 20090407
  4. YASMIN [Suspect]
     Indication: MENSTRUAL CYCLE MANAGEMENT
     Dosage: UNK
     Dates: start: 20020101, end: 20070101
  5. DROSPIRENONE AND ETHINYL ESTRADIOL [Suspect]
     Indication: MENSTRUAL CYCLE MANAGEMENT
     Dosage: UNK
     Dates: start: 20020101, end: 20070101
  6. YASMIN [Suspect]
     Dosage: UNK
     Dates: start: 20020101, end: 20080601
  7. FLUCONAZOLE [Concomitant]
     Dosage: 150 MG, UNK
     Route: 048
     Dates: start: 20090407
  8. CHERATUSSIN [CODEINE,GUAIFENESIN,PSEUDOEPHEDRINE] [Concomitant]
     Dosage: UNK
     Route: 048
     Dates: start: 20090408
  9. NON-STEROIDAL ANTI-INFLAMMATORY [Concomitant]
     Dosage: UNK UNK, PRN
     Route: 048
  10. GOLYTELY [Concomitant]
     Dosage: 4000 ML, UNK
     Route: 048
     Dates: start: 20090505

REACTIONS (4)
  - CHOLELITHIASIS [None]
  - CHOLECYSTITIS CHRONIC [None]
  - PAIN [None]
  - INJURY [None]
